FAERS Safety Report 9212997 (Version 1)
Quarter: 2013Q2

REPORT INFORMATION
  Report Type: Spontaneous
  Country: US (occurrence: None)
  Receive Date: 20130403
  Receipt Date: 20130403
  Transmission Date: 20140414
  Serious: Yes (Other)
  Sender: FDA-Public Use
  Company Number: None

PATIENT
  Age: 40 Year
  Sex: Male
  Weight: 67.13 kg

DRUGS (5)
  1. LAMICTAL [Suspect]
     Dosage: 25MG WEEK 1 50MG WEEK 2
     Route: 048
     Dates: start: 20130320, end: 20130326
  2. LAMICTAL [Suspect]
     Dosage: 100MG ONCE WEEK 1  TWO WEEK 2; 1 A DAY THEN 2 WK 2
     Route: 048
  3. DEPAKOTE [Concomitant]
  4. LITHIUM [Concomitant]
  5. ABILIFY [Concomitant]

REACTIONS (1)
  - Adverse drug reaction [None]
